FAERS Safety Report 5398481-2 (Version None)
Quarter: 2007Q3

REPORT INFORMATION
  Report Type: 
  Country: None (occurrence: None)
  Receive Date: 20070726
  Receipt Date: 20070222
  Transmission Date: 20080115
  Serious: No
  Sender: FDA-Public Use
  Company Number: US-AMGEN-KDL212528

PATIENT
  Sex: Male
  Weight: 73.1 kg

DRUGS (9)
  1. PROCRIT [Suspect]
     Indication: ANAEMIA
     Dates: start: 20070221
  2. COREG [Concomitant]
  3. PLAVIX [Concomitant]
  4. ALTACE [Concomitant]
  5. LOVASTATIN [Concomitant]
  6. SPIRONOLACTONE [Concomitant]
  7. PRIMIDONE [Concomitant]
  8. ASPIRIN [Concomitant]
  9. CYMBALTA [Concomitant]

REACTIONS (1)
  - GROIN PAIN [None]
